FAERS Safety Report 4667858-2 (Version None)
Quarter: 2005Q2

REPORT INFORMATION
  Report Type: 
  Country: None (occurrence: None)
  Receive Date: 20050520
  Receipt Date: 20050520
  Transmission Date: 20051028
  Serious: Yes (Hospitalization)
  Sender: FDA-Public Use
  Company Number: None

PATIENT
  Age: 45 Year
  Sex: Female
  Weight: 56.6996 kg

DRUGS (10)
  1. GEMCITABINE [Suspect]
     Indication: LEIOMYOSARCOMA
     Dosage: 675 MG/M2 DAYS 1, 8
  2. DOCETAXEL [Suspect]
     Indication: LEIOMYOSARCOMA
     Dosage: 75 MG/M2 DAY 8
  3. AMBIEN [Concomitant]
  4. ATIVAN [Concomitant]
  5. CELEXA [Concomitant]
  6. DARVOCET [Concomitant]
  7. DECADRON [Concomitant]
  8. FRAGMIN [Concomitant]
  9. METHADONE [Concomitant]
  10. PREMARIN [Concomitant]

REACTIONS (8)
  - ANAEMIA [None]
  - BLOOD CALCIUM ABNORMAL [None]
  - DISEASE PROGRESSION [None]
  - HYPOALBUMINAEMIA [None]
  - HYPOPHOSPHATAEMIA [None]
  - METASTASIS [None]
  - SMALL INTESTINAL OBSTRUCTION [None]
  - THROMBOCYTOPENIA [None]
